FAERS Safety Report 7717134-6 (Version None)
Quarter: 2011Q3

REPORT INFORMATION
  Report Type: 
  Country: None (occurrence: None)
  Receive Date: 20110826
  Receipt Date: 20110826
  Transmission Date: 20111222
  Serious: Yes (Hospitalization)
  Sender: FDA-Public Use
  Company Number: None

PATIENT
  Sex: Male

DRUGS (1)
  1. LIORESAL [Suspect]
     Indication: MUSCLE SPASTICITY
     Dosage: 720 MCG, DAILY INTRATHECAL
     Route: 037

REACTIONS (4)
  - COLECTOMY [None]
  - IMMOBILE [None]
  - POSTOPERATIVE ILEUS [None]
  - MEDICAL DEVICE COMPLICATION [None]
